FAERS Safety Report 8310049-4 (Version None)
Quarter: 2012Q2

REPORT INFORMATION
  Report Type: 
  Country: None (occurrence: None)
  Receive Date: 20120425
  Receipt Date: 20120417
  Transmission Date: 20120825
  Serious: Yes (Hospitalization)
  Sender: FDA-Public Use
  Company Number: US-VERTEX PHARMACEUTICALS INC.-AE-2012-005607

PATIENT
  Sex: Male

DRUGS (9)
  1. PEGASYS [Concomitant]
     Indication: HEPATITIS C
     Route: 058
     Dates: start: 20120127
  2. TRAMADOL HCL [Concomitant]
     Indication: PAIN
  3. INCIVEK [Concomitant]
  4. QUETIAPINE [Concomitant]
     Indication: BIPOLAR DISORDER
  5. OMEPRAZOLE [Concomitant]
     Indication: GASTROOESOPHAGEAL REFLUX DISEASE
  6. INCIVEK [Suspect]
     Indication: HEPATITIS C
     Route: 048
     Dates: start: 20120127, end: 20120404
  7. BENICAR [Concomitant]
     Indication: HYPERTENSION
  8. RIBAVIRIN [Concomitant]
     Indication: HEPATITIS C
     Route: 048
     Dates: start: 20120127
  9. FLEXERIL [Concomitant]
     Indication: MUSCLE SPASMS

REACTIONS (4)
  - FATIGUE [None]
  - NAUSEA [None]
  - HAEMATEMESIS [None]
  - DYSPEPSIA [None]
